FAERS Safety Report 9638344 (Version 2)
Quarter: 2013Q4

REPORT INFORMATION
  Report Type: Spontaneous
  Country: US (occurrence: US)
  Receive Date: 20131022
  Receipt Date: 20131022
  Transmission Date: 20140711
  Serious: No
  Sender: FDA-Public Use
  Company Number: US-MYLANLABS-2012S1022259

PATIENT
  Age: 67 Year
  Sex: Female
  Weight: 46.72 kg

DRUGS (10)
  1. MIDODRINE HYDROCHLORIDE TABLETS [Suspect]
     Indication: ORTHOSTATIC HYPOTENSION
     Dosage: 15MG IN AM 10MG AT LUNCH AND 5 MG AT DINNER DAILY
     Route: 048
     Dates: start: 2002
  2. PLAVIX [Concomitant]
     Indication: CEREBROVASCULAR ACCIDENT
  3. VITAMIN [Concomitant]
  4. VITAMIN B12 [Concomitant]
  5. BONIVA [Concomitant]
     Indication: OSTEOPOROSIS
  6. METHADONE [Concomitant]
     Indication: HEADACHE
  7. NAMENDA [Concomitant]
     Indication: HEADACHE
     Dates: start: 201209
  8. POTASSIUM [Concomitant]
  9. SODIUM CHLORIDE [Concomitant]
  10. VITAMIN D3 [Concomitant]

REACTIONS (3)
  - Drug ineffective [Not Recovered/Not Resolved]
  - Hypotension [Not Recovered/Not Resolved]
  - Fatigue [Not Recovered/Not Resolved]
